FAERS Safety Report 6701437-8 (Version None)
Quarter: 2010Q2

REPORT INFORMATION
  Report Type: 
  Country: None (occurrence: None)
  Receive Date: 20100429
  Receipt Date: 20100413
  Transmission Date: 20101027
  Serious: Yes (Other)
  Sender: FDA-Public Use
  Company Number: US-BAYER-200934045NA

PATIENT
  Age: 47 Year
  Sex: Female
  Weight: 133 kg

DRUGS (14)
  1. YASMIN [Suspect]
     Indication: MENSTRUATION IRREGULAR
     Dosage: 3-.03 MG
     Route: 048
     Dates: start: 20050301, end: 20080630
  2. OCELLA [Suspect]
     Indication: MENSTRUATION IRREGULAR
     Dosage: 3-.03 MG
     Route: 048
     Dates: start: 20080929, end: 20081128
  3. OXYCODONE AND ACETAMINOPHEN [Concomitant]
     Route: 065
  4. TRIAMTERENE AND HYDROCHLOROTHIAZIDE [Concomitant]
     Route: 065
  5. METHYLPREDNISOLONE [Concomitant]
     Route: 065
  6. PROPOXYPHENE NAPSYLATE AND ACETAMINOPHEN [Concomitant]
     Route: 065
  7. SKELAXIN [Concomitant]
     Route: 065
  8. EFFEXOR XR [Concomitant]
     Route: 065
  9. LEVAQUIN [Concomitant]
     Route: 065
  10. TRAMADOL HCL [Concomitant]
     Route: 065
  11. CIPROFLOXACIN [Concomitant]
     Route: 065
  12. ACETAMINOPHEN W/ CODEINE NO. 3 [Concomitant]
     Route: 065
  13. IBUPROFEN [Concomitant]
     Route: 065
  14. LISINOPRIL [Concomitant]
     Route: 065

REACTIONS (4)
  - DEEP VEIN THROMBOSIS [None]
  - OEDEMA [None]
  - OEDEMA PERIPHERAL [None]
  - PAIN IN EXTREMITY [None]
